FAERS Safety Report 4492815-9 (Version None)
Quarter: 2004Q4

REPORT INFORMATION
  Report Type: 
  Country: None (occurrence: None)
  Receive Date: 20041103
  Receipt Date: 20041025
  Transmission Date: 20050328
  Serious: No
  Sender: FDA-Public Use
  Company Number: 2004UW17460

PATIENT
  Age: 60 Year
  Sex: Female
  Weight: 81.1939 kg

DRUGS (2)
  1. CRESTOR [Suspect]
     Indication: BLOOD CHOLESTEROL INCREASED
     Dosage: 10 MG QD PO
     Route: 048
     Dates: start: 20040617, end: 20040804
  2. METHIMAZOLE [Concomitant]

REACTIONS (3)
  - CHOKING [None]
  - COUGH [None]
  - PHARYNGOLARYNGEAL PAIN [None]
